FAERS Safety Report 5329415-4 (Version None)
Quarter: 2007Q1

REPORT INFORMATION
  Report Type: 
  Country: None (occurrence: None)
  Receive Date: 20070223
  Receipt Date: 20060822
  Transmission Date: 20070707
  Serious: Yes (Other)
  Sender: FDA-Public Use
  Company Number: WAES 0608USA05339

PATIENT
  Age: 59 Year
  Sex: Male

DRUGS (3)
  1. ZOCOR [Suspect]
     Indication: HYPERCHOLESTEROLAEMIA
     Dosage: 20 MG/DAILY/PO
     Route: 048
     Dates: start: 20050101, end: 20060812
  2. ASPIRIN [Concomitant]
  3. OMEGA-3 MARINE TRIGLYCERIDES [Concomitant]

REACTIONS (1)
  - RHABDOMYOLYSIS [None]
